APPROVED DRUG PRODUCT: BACTOCILL
Active Ingredient: OXACILLIN SODIUM
Strength: EQ 250MG BASE/5ML
Dosage Form/Route: FOR SOLUTION;ORAL
Application: A062321 | Product #001
Applicant: GLAXOSMITHKLINE
Approved: Approved Prior to Jan 1, 1982 | RLD: No | RS: No | Type: DISCN